FAERS Safety Report 8767006 (Version 1)
Quarter: 2012Q4

REPORT INFORMATION
  Report Type: Report from Study
  Country: TW (occurrence: TW)
  Receive Date: 20120904
  Receipt Date: 20120904
  Transmission Date: 20130627
  Serious: Yes (Hospitalization)
  Sender: FDA-Public Use
  Company Number: TW-SANOFI-AVENTIS-2012SA060643

PATIENT
  Age: 71 Year
  Sex: Female
  Weight: 59.5 kg

DRUGS (2)
  1. DRONEDARONE [Suspect]
     Indication: ATRIAL FIBRILLATION
     Route: 048
     Dates: start: 20120502
  2. CONCOR [Concomitant]

REACTIONS (1)
  - Cerebral infarction [Recovered/Resolved]
